FAERS Safety Report 7724886-8 (Version None)
Quarter: 2011Q3

REPORT INFORMATION
  Report Type: 
  Country: None (occurrence: None)
  Receive Date: 20110901
  Receipt Date: 20110822
  Transmission Date: 20111222
  Serious: Yes (Other)
  Sender: FDA-Public Use
  Company Number: US-MPIJNJ-2011-03795

PATIENT

DRUGS (3)
  1. VELCADE [Suspect]
     Indication: NEOPLASM
     Dosage: UNK
     Route: 040
  2. ONDANSETRON [Concomitant]
     Indication: PROPHYLAXIS OF NAUSEA AND VOMITING
     Dosage: 8 MG, UNK
     Route: 048
  3. TEMODAR [Suspect]
     Indication: NEOPLASM
     Dosage: UNK
     Route: 048

REACTIONS (1)
  - HYPERGLYCAEMIA [None]
